FAERS Safety Report 24045029 (Version 1)
Quarter: 2024Q3

REPORT INFORMATION
  Report Type: Spontaneous
  Country: US (occurrence: US)
  Receive Date: 20240703
  Receipt Date: 20240703
  Transmission Date: 20241017
  Serious: No
  Sender: LNK INTERNATIONAL
  Company Number: US-LNK INTERNATIONAL, INC.-2158779

PATIENT
  Sex: Female

DRUGS (1)
  1. ANTI DIARRHEAL [Suspect]
     Active Substance: LOPERAMIDE HYDROCHLORIDE
     Indication: Diarrhoea

REACTIONS (1)
  - Drug ineffective [Unknown]
